FAERS Safety Report 13296949 (Version 1)
Quarter: 2017Q1

REPORT INFORMATION
  Report Type: Spontaneous
  Country: US (occurrence: US)
  Receive Date: 20170306
  Receipt Date: 20170306
  Transmission Date: 20170428
  Serious: No
  Sender: FDA-Public Use
  Company Number: US-SENTYNL THERAPEUTICS, INC.  -1063844

PATIENT
  Age: 58 Year
  Sex: Male
  Weight: 67.73 kg

DRUGS (7)
  1. ABSTRAL [Suspect]
     Active Substance: FENTANYL CITRATE
     Indication: PAIN
     Route: 060
     Dates: start: 201504
  2. ABSTRAL [Suspect]
     Active Substance: FENTANYL CITRATE
     Indication: DIABETES MELLITUS
     Route: 060
     Dates: start: 201504
  3. EVZIO [Concomitant]
     Active Substance: NALOXONE HYDROCHLORIDE
  4. ONDANSETRON [Concomitant]
     Active Substance: ONDANSETRON
  5. ABSTRAL [Suspect]
     Active Substance: FENTANYL CITRATE
     Indication: HEPATIC CIRRHOSIS
     Route: 060
     Dates: start: 201504
  6. DILAUDID [Concomitant]
     Active Substance: HYDROMORPHONE HYDROCHLORIDE
  7. ABSTRAL [Suspect]
     Active Substance: FENTANYL CITRATE
     Indication: PANCREATITIS CHRONIC
     Route: 060
     Dates: start: 201504

REACTIONS (2)
  - Nausea [Unknown]
  - Off label use [Unknown]

NARRATIVE: CASE EVENT DATE: 201504
